FAERS Safety Report 8301861-6 (Version None)
Quarter: 2012Q1

REPORT INFORMATION
  Report Type: 
  Country: None (occurrence: None)
  Receive Date: 20120326
  Receipt Date: 20110927
  Transmission Date: 20120608
  Serious: Yes (Other)
  Sender: FDA-Public Use
  Company Number: PHHY2010US87492

PATIENT
  Age: 49 Year
  Sex: Male

DRUGS (6)
  1. IBUPROFEN [Suspect]
     Indication: PAIN
     Dosage: 2 DF, QD
  2. IBUPROFEN (ADVIL) [Suspect]
     Indication: PAIN
     Dosage: 200 MG, ORAL
     Route: 048
  3. PREVACID [Suspect]
  4. TASIGNA [Suspect]
     Indication: LEUKAEMIA
     Dosage: 400 MG, BID, ORAL
     Route: 048
  5. OXYCHLOROSENE [Suspect]
  6. CLONOPIN [Concomitant]

REACTIONS (8)
  - GASTRIC ULCER [None]
  - MALAISE [None]
  - HAEMATOCHEZIA [None]
  - HAEMATEMESIS [None]
  - RECTAL HAEMORRHAGE [None]
  - ABDOMINAL PAIN [None]
  - VOMITING [None]
  - DIARRHOEA [None]
